FAERS Safety Report 5449414-1 (Version None)
Quarter: 2007Q3

REPORT INFORMATION
  Report Type: 
  Country: None (occurrence: None)
  Receive Date: 20070911
  Receipt Date: 20070906
  Transmission Date: 20080115
  Serious: Yes (Hospitalization, Disabling)
  Sender: FDA-Public Use
  Company Number: FR-MERCK-0706FRA00014

PATIENT
  Age: 57 Year
  Sex: Female

DRUGS (2)
  1. FOSAMAX [Suspect]
     Indication: OSTEOPOROSIS
     Route: 048
     Dates: start: 20040515
  2. FLUINDIONE [Suspect]
     Indication: PHLEBITIS
     Route: 048
     Dates: start: 20060615

REACTIONS (2)
  - SYNOVITIS [None]
  - TENDONITIS [None]
